FAERS Safety Report 7600064-8 (Version None)
Quarter: 2011Q3

REPORT INFORMATION
  Report Type: 
  Country: None (occurrence: None)
  Receive Date: 20110706
  Receipt Date: 20110706
  Transmission Date: 20111222
  Serious: Yes (Hospitalization)
  Sender: FDA-Public Use
  Company Number: None

PATIENT
  Age: 73 Year
  Sex: Female
  Weight: 72 kg

DRUGS (1)
  1. RECLAST [Suspect]
     Indication: OSTEOPOROSIS
     Dosage: 5MG ONCE IV DRIP
     Route: 041
     Dates: start: 20110629, end: 20110629

REACTIONS (4)
  - VOMITING [None]
  - NAUSEA [None]
  - EPISCLERITIS [None]
  - DEHYDRATION [None]
